FAERS Safety Report 21240965 (Version 1)
Quarter: 2022Q3

REPORT INFORMATION
  Report Type: Report from Study
  Country: US (occurrence: US)
  Receive Date: 20220823
  Receipt Date: 20220823
  Transmission Date: 20221026
  Serious: Yes (Death, Hospitalization, Other)
  Sender: FDA-Public Use
  Company Number: US-JNJFOC-20210942409

PATIENT
  Age: 56 Year
  Sex: Male
  Weight: 113.2 kg

DRUGS (2)
  1. DARATUMUMAB [Suspect]
     Active Substance: DARATUMUMAB
     Indication: Plasma cell myeloma
     Dosage: LAST DOSE: 31-AUG-2021
     Route: 065
     Dates: start: 20210330
  2. LENALIDOMIDE [Suspect]
     Active Substance: LENALIDOMIDE
     Indication: Plasma cell myeloma
     Dosage: LAST DOSE: 15-SEP-2021
     Route: 065
     Dates: start: 20210330

REACTIONS (6)
  - Sepsis [Fatal]
  - Acute kidney injury [Unknown]
  - Pulseless electrical activity [Unknown]
  - Atrial fibrillation [Unknown]
  - Pneumonia [Unknown]
  - Neutrophil count decreased [Unknown]

NARRATIVE: CASE EVENT DATE: 20210914
